FAERS Safety Report 12497891 (Version 4)
Quarter: 2017Q4

REPORT INFORMATION
  Report Type: Spontaneous
  Country: US (occurrence: US)
  Receive Date: 20160625
  Receipt Date: 20171219
  Transmission Date: 20180320
  Serious: Yes (Other)
  Sender: FDA-Public Use
  Company Number: US-TEVA-670663USA

PATIENT
  Age: 40 Year
  Sex: Female

DRUGS (12)
  1. OXYCODONE [Concomitant]
     Active Substance: OXYCODONE
  2. OXYCODONE [Concomitant]
     Active Substance: OXYCODONE
  3. COPAXONE [Suspect]
     Active Substance: GLATIRAMER ACETATE
     Dosage: 20 MILLIGRAM/MILLILITERS DAILY;
     Route: 058
     Dates: start: 20150703
  4. TIZANIDINE. [Concomitant]
     Active Substance: TIZANIDINE
  5. TOPIRAMATE. [Concomitant]
     Active Substance: TOPIRAMATE
  6. ZALEPLON. [Concomitant]
     Active Substance: ZALEPLON
  7. TOPAMAX [Concomitant]
     Active Substance: TOPIRAMATE
  8. LOSARTAN. [Concomitant]
     Active Substance: LOSARTAN
  9. LOSARTAN W/HYDROCHLOROTHIAZIDE [Concomitant]
  10. GABAPENTIN. [Concomitant]
     Active Substance: GABAPENTIN
  11. COPAXONE [Suspect]
     Active Substance: GLATIRAMER ACETATE
     Indication: MULTIPLE SCLEROSIS
     Dosage: 20 MILLIGRAM/MILLILITERS DAILY;
     Route: 058
     Dates: start: 20131227
  12. HCT [Concomitant]
     Active Substance: HYDROCHLOROTHIAZIDE

REACTIONS (4)
  - Fall [Not Recovered/Not Resolved]
  - Visual impairment [Not Recovered/Not Resolved]
  - Balance disorder [Not Recovered/Not Resolved]
  - Hypoaesthesia [Not Recovered/Not Resolved]

NARRATIVE: CASE EVENT DATE: 201706
